FAERS Safety Report 4393180-8 (Version None)
Quarter: 2004Q3

REPORT INFORMATION
  Report Type: 
  Country: None (occurrence: None)
  Receive Date: 20040702
  Receipt Date: 20040625
  Transmission Date: 20050211
  Serious: Yes (Other)
  Sender: FDA-Public Use
  Company Number: 2004-06-1920

PATIENT
  Age: 79 Year
  Sex: Female

DRUGS (10)
  1. RINDERON (BETAMETHASONE SODIUM PHOSPHATE) OPHTHALMIC SOLUTION ^LIKE CE [Suspect]
     Indication: ANTIINFLAMMATORY THERAPY
     Dosage: SEE IMAGE
     Route: 031
     Dates: start: 20020820, end: 20020902
  2. RINDERON (BETAMETHASONE SODIUM PHOSPHATE) OPHTHALMIC SOLUTION ^LIKE CE [Suspect]
     Indication: ANTIINFLAMMATORY THERAPY
     Dosage: SEE IMAGE
     Route: 031
     Dates: start: 20020820, end: 20021004
  3. RINDERON (BETAMETHASONE SODIUM PHOSPHATE) OPHTHALMIC SOLUTION ^LIKE CE [Suspect]
     Indication: ANTIINFLAMMATORY THERAPY
     Dosage: SEE IMAGE
     Route: 031
     Dates: start: 20020908, end: 20021004
  4. GENTACIN ( GENTAMICIN SULFATE) OPHTHALMIC SOLUTION [Suspect]
     Indication: ANTIINFLAMMATORY THERAPY
     Dosage: 6 DROPS QD INTRAOCULAR
     Route: 031
     Dates: start: 20020808, end: 20020902
  5. ATROPINE SULFATE [Suspect]
     Indication: INFLAMMATION
     Dosage: 2 DROPS QD INTRAOCULAR
     Route: 031
     Dates: start: 20020808, end: 20020902
  6. LEVOFLOXACIN [Concomitant]
  7. DICLOFENAC SODIUM [Concomitant]
  8. TRUSOPT [Concomitant]
  9. FLUOROMETHOLONE [Concomitant]
  10. OFLOXACIN [Concomitant]

REACTIONS (5)
  - CONDITION AGGRAVATED [None]
  - CORNEAL DEPOSITS [None]
  - DRUG EFFECT DECREASED [None]
  - ENDOPHTHALMITIS [None]
  - REACTION TO DRUG PRESERVATIVES [None]
